FAERS Safety Report 10881085 (Version 1)
Quarter: 2015Q1

REPORT INFORMATION
  Report Type: Spontaneous
  Country: US (occurrence: US)
  Receive Date: 20150303
  Receipt Date: 20150303
  Transmission Date: 20150721
  Serious: No
  Sender: FDA-Public Use
  Company Number: US-PFIZER INC-2015075233

PATIENT
  Sex: Female

DRUGS (11)
  1. PROZAC [Suspect]
     Active Substance: FLUOXETINE HYDROCHLORIDE
  2. LAMOTRIGINE. [Suspect]
     Active Substance: LAMOTRIGINE
  3. SEROQUEL [Suspect]
     Active Substance: QUETIAPINE FUMARATE
  4. NORTRIPTYLINE [Suspect]
     Active Substance: NORTRIPTYLINE
  5. SELEGILINE [Suspect]
     Active Substance: SELEGILINE
     Route: 062
  6. CYMBALTA [Suspect]
     Active Substance: DULOXETINE HYDROCHLORIDE
  7. AMITRIPTYLINE [Suspect]
     Active Substance: AMITRIPTYLINE
  8. MORPHINE SULFATE. [Suspect]
     Active Substance: MORPHINE SULFATE
  9. NAMENDA [Suspect]
     Active Substance: MEMANTINE HYDROCHLORIDE
  10. SAVELLA [Suspect]
     Active Substance: MILNACIPRAN HYDROCHLORIDE
  11. HYDROCODONE [Suspect]
     Active Substance: HYDROCODONE

REACTIONS (1)
  - Drug hypersensitivity [Not Recovered/Not Resolved]
